FAERS Safety Report 7792429-9 (Version None)
Quarter: 2011Q4

REPORT INFORMATION
  Report Type: 
  Country: None (occurrence: None)
  Receive Date: 20111003
  Receipt Date: 20110923
  Transmission Date: 20120403
  Serious: Yes (Other)
  Sender: FDA-Public Use
  Company Number: GB-ASTRAZENECA-2011SE57363

PATIENT
  Sex: Male

DRUGS (8)
  1. ONDANSETRON [Concomitant]
  2. ACETAMINOPHEN [Concomitant]
     Route: 048
  3. QUININE SULFATE [Concomitant]
     Route: 048
  4. AMITRIPTYLINE HCL [Suspect]
     Route: 048
  5. PREDNISOLONE [Concomitant]
     Route: 048
  6. MIRTAZAPINE [Suspect]
     Route: 048
  7. OMEPRAZOLE [Suspect]
     Route: 048
  8. DOMPERIDONE [Concomitant]
     Route: 048

REACTIONS (2)
  - URINE SODIUM DECREASED [None]
  - BLOOD SODIUM DECREASED [None]
